FAERS Safety Report 9633608 (Version 4)
Quarter: 2013Q4

REPORT INFORMATION
  Report Type: Report from Study
  Country: US (occurrence: US)
  Receive Date: 20131021
  Receipt Date: 20131106
  Transmission Date: 20140711
  Serious: Yes (Hospitalization)
  Sender: FDA-Public Use
  Company Number: US-JNJFOC-20131009159

PATIENT
  Age: 16 Year
  Sex: Male
  Weight: 52.9 kg

DRUGS (9)
  1. REMICADE [Suspect]
     Indication: CROHN^S DISEASE
     Route: 042
     Dates: start: 20110701
  2. REMICADE [Suspect]
     Indication: CROHN^S DISEASE
     Route: 042
     Dates: start: 20130906, end: 20130906
  3. PROBIOTICS [Concomitant]
     Route: 065
  4. VITAMIN D3 [Concomitant]
     Route: 065
  5. TRETINOIN [Concomitant]
     Route: 061
  6. CIMZIA [Concomitant]
     Route: 065
     Dates: start: 20131021
  7. CIMZIA [Concomitant]
     Route: 065
     Dates: start: 20131007
  8. VIACTIV WITH D [Concomitant]
     Route: 065
  9. NIZORAL [Concomitant]
     Route: 065

REACTIONS (2)
  - Dehydration [Recovered/Resolved]
  - Ileal stenosis [Recovered/Resolved]
